FAERS Safety Report 5304891-1 (Version None)
Quarter: 2007Q2

REPORT INFORMATION
  Report Type: 
  Country: None (occurrence: None)
  Receive Date: 20070417
  Receipt Date: 20070321
  Transmission Date: 20071010
  Serious: Yes (Other)
  Sender: FDA-Public Use
  Company Number: 2007SP006803

PATIENT
  Age: 79 Year
  Sex: Female
  Weight: 63.05 kg

DRUGS (9)
  1. CLARITIN-D [Suspect]
     Indication: SINUS CONGESTION
     Dosage: 1 DF; ONCE; PO
     Route: 048
  2. CALCIUM /00009901/ [Concomitant]
  3. VITAMIN D /00107901/ [Concomitant]
  4. COREG [Concomitant]
  5. LASIX [Concomitant]
  6. SPIRONOLACTONE [Concomitant]
  7. DIGOXIN /00545901/ [Concomitant]
  8. COZAAR [Concomitant]
  9. COUMADIN [Concomitant]

REACTIONS (4)
  - DYSKINESIA [None]
  - HEADACHE [None]
  - NAUSEA [None]
  - TREMOR [None]
